APPROVED DRUG PRODUCT: MOCTANIN
Active Ingredient: MONOCTANOIN
Strength: 100%
Dosage Form/Route: LIQUID;PERFUSION, BILIARY
Application: N019368 | Product #001
Applicant: ETHITEK PHARMACEUTICALS CO
Approved: Oct 29, 1985 | RLD: No | RS: No | Type: DISCN